FAERS Safety Report 16625571 (Version 3)
Quarter: 2019Q4

REPORT INFORMATION
  Report Type: Report from Study
  Country: None (occurrence: FR)
  Receive Date: 20190724
  Receipt Date: 20191217
  Transmission Date: 20200122
  Serious: Yes (Death, Hospitalization, Other)
  Sender: FDA-Public Use
  Company Number: FR-ABBVIE-19K-056-2860812-00

PATIENT
  Age: 60 Year
  Sex: Female

DRUGS (5)
  1. VENCLYXTO [Suspect]
     Active Substance: VENETOCLAX
     Route: 048
     Dates: start: 20190509, end: 20190515
  2. VENCLYXTO [Suspect]
     Active Substance: VENETOCLAX
     Route: 048
     Dates: start: 20190523, end: 20190528
  3. VENCLYXTO [Suspect]
     Active Substance: VENETOCLAX
     Route: 046
     Dates: start: 20190529, end: 20190602
  4. VENCLYXTO [Suspect]
     Active Substance: VENETOCLAX
     Indication: CHRONIC LYMPHOCYTIC LEUKAEMIA
     Route: 046
     Dates: start: 20190502, end: 20190508
  5. VENCLYXTO [Suspect]
     Active Substance: VENETOCLAX
     Route: 048
     Dates: start: 20190516, end: 20190522

REACTIONS (20)
  - Back pain [Recovered/Resolved]
  - Oedema peripheral [Recovered/Resolved]
  - Hypocalcaemia [Recovered/Resolved]
  - Hypocalcaemia [Recovered/Resolved]
  - Hypocalcaemia [Not Recovered/Not Resolved]
  - Hypophosphataemia [Recovered/Resolved]
  - Palpitations [Recovered/Resolved with Sequelae]
  - Confusional state [Not Recovered/Not Resolved]
  - Richter^s syndrome [Unknown]
  - Hypophosphataemia [Not Recovered/Not Resolved]
  - Anaemia [Not Recovered/Not Resolved]
  - Death [Fatal]
  - Spinal pain [Recovered/Resolved]
  - Hypercalcaemia [Recovered/Resolved]
  - Asthenia [Not Recovered/Not Resolved]
  - Gout [Recovered/Resolved]
  - Hypophosphataemia [Recovered/Resolved]
  - Hyperthermia [Recovered/Resolved]
  - Hyperthermia [Recovered/Resolved]
  - Pain [Recovered/Resolved]

NARRATIVE: CASE EVENT DATE: 201905
